FAERS Safety Report 6142498-7 (Version None)
Quarter: 2009Q2

REPORT INFORMATION
  Report Type: 
  Country: None (occurrence: None)
  Receive Date: 20090403
  Receipt Date: 20090325
  Transmission Date: 20091009
  Serious: Yes (Life-Threatening, Hospitalization)
  Sender: FDA-Public Use
  Company Number: JP-SANOFI-SYNTHELABO-A01200902914

PATIENT
  Sex: Male
  Weight: 69 kg

DRUGS (17)
  1. ASPARA POTASSIUM [Concomitant]
     Indication: HYPONATRAEMIA
     Route: 048
     Dates: start: 20090114, end: 20090323
  2. APHTASOLON [Concomitant]
     Indication: STOMATITIS
     Dosage: UNK
     Dates: start: 20081110
  3. LASIX [Concomitant]
     Indication: ASCITES
     Route: 048
     Dates: start: 20081110
  4. THYRADIN S [Concomitant]
     Indication: HYPOTHYROIDISM
     Route: 048
     Dates: start: 20080901
  5. ADALAT [Concomitant]
     Indication: HYPERTENSION
     Route: 048
     Dates: start: 20080901, end: 20090318
  6. NASEA-OD [Concomitant]
     Indication: NAUSEA
     Route: 048
     Dates: start: 20080704, end: 20080922
  7. DECADRON [Concomitant]
     Indication: PREMEDICATION
     Route: 042
     Dates: start: 20080707, end: 20090225
  8. DECADRON [Concomitant]
     Indication: NAUSEA
     Route: 042
     Dates: start: 20080707, end: 20090225
  9. DECADRON [Concomitant]
     Route: 048
     Dates: start: 20080704
  10. DECADRON [Concomitant]
     Route: 048
     Dates: start: 20080704
  11. KYTRIL [Concomitant]
     Indication: PREMEDICATION
     Route: 042
     Dates: start: 20080707, end: 20090225
  12. FLUOROURACIL [Suspect]
     Dosage: 700MG/BODY (400MG/M2) IN BOLUS THEN 4200MG/BODY/D1-2 (2400MG/M2/D1-2) AS CONTINUOUS INFUSION
     Route: 040
     Dates: start: 20090225, end: 20090225
  13. FLUOROURACIL [Suspect]
     Route: 041
     Dates: start: 20090225, end: 20090226
  14. CEDIRANIB [Concomitant]
     Indication: COLON CANCER
     Dosage: UNK
     Route: 048
     Dates: start: 20080707, end: 20081224
  15. ISOVORIN [Suspect]
     Route: 041
     Dates: start: 20090225, end: 20090225
  16. ELPLAT [Suspect]
     Indication: COLON CANCER
     Route: 041
     Dates: start: 20090225, end: 20090225
  17. PRIMPERAN [Concomitant]
     Indication: NAUSEA
     Route: 048
     Dates: start: 20080704, end: 20080922

REACTIONS (2)
  - DELIRIUM [None]
  - REACTIVE PSYCHOSIS [None]
